FAERS Safety Report 8121655-4 (Version None)
Quarter: 2012Q1

REPORT INFORMATION
  Report Type: 
  Country: None (occurrence: None)
  Receive Date: 20120208
  Receipt Date: 20120208
  Transmission Date: 20120608
  Serious: Yes (Life-Threatening, Hospitalization, Disabling)
  Sender: FDA-Public Use
  Company Number: None

PATIENT
  Age: 16 Year
  Sex: Male

DRUGS (3)
  1. MINOCYCLINE HCL [Suspect]
     Indication: ACNE
     Dosage: 100.0 MG
     Route: 048
     Dates: start: 20111223, end: 20120120
  2. ZITHROMAX [Concomitant]
  3. AMOXICILLIN [Concomitant]

REACTIONS (16)
  - EOSINOPHILIA [None]
  - DIALYSIS [None]
  - RASH MORBILLIFORM [None]
  - FATIGUE [None]
  - EOSINOPHIL COUNT [None]
  - HYPERTENSION [None]
  - PYREXIA [None]
  - LYMPHADENOPATHY [None]
  - RENAL FAILURE ACUTE [None]
  - TUBULOINTERSTITIAL NEPHRITIS [None]
  - HEPATIC ENZYME INCREASED [None]
  - FLUID RETENTION [None]
  - DRUG RASH WITH EOSINOPHILIA AND SYSTEMIC SYMPTOMS [None]
  - FACE OEDEMA [None]
  - HEADACHE [None]
  - RASH [None]
